FAERS Safety Report 4705723-2 (Version None)
Quarter: 2005Q3

REPORT INFORMATION
  Report Type: 
  Country: None (occurrence: None)
  Receive Date: 20050701
  Receipt Date: 20050628
  Transmission Date: 20060218
  Serious: Yes (Death, Other)
  Sender: FDA-Public Use
  Company Number: GB-MERCK-0506USA04011

PATIENT
  Age: 75 Year
  Sex: Female

DRUGS (15)
  1. PRINIVIL [Suspect]
     Indication: HYPERTENSION
     Route: 048
  2. PRINIVIL [Suspect]
     Route: 048
  3. ARAVA [Suspect]
     Indication: RHEUMATOID ARTHRITIS
     Route: 048
  4. ARAVA [Suspect]
     Route: 048
  5. ASPIRIN [Concomitant]
     Route: 065
  6. ATORVASTATIN CALCIUM [Concomitant]
     Route: 065
     Dates: start: 19990101
  7. BUDESONIDE [Concomitant]
     Route: 065
  8. DILTIAZEM CD [Concomitant]
     Route: 065
  9. FENTANYL [Concomitant]
     Route: 065
  10. LANSOPRAZOLE [Concomitant]
     Route: 065
  11. MIDAZOLAM [Concomitant]
     Route: 065
  12. NITROGLYCERIN [Concomitant]
     Route: 065
  13. PANCURONIUM BROMIDE [Concomitant]
     Route: 065
  14. PROPOFOL [Concomitant]
     Route: 065
  15. QUININE SULFATE [Concomitant]
     Route: 065

REACTIONS (5)
  - CORONARY ARTERY DISEASE [None]
  - GASTROINTESTINAL HAEMORRHAGE [None]
  - HEPATIC FAILURE [None]
  - RENAL FAILURE [None]
  - ULCER [None]
